FAERS Safety Report 7134689-3 (Version None)
Quarter: 2010Q4

REPORT INFORMATION
  Report Type: 
  Country: None (occurrence: None)
  Receive Date: 20101203
  Receipt Date: 20101123
  Transmission Date: 20110411
  Serious: Yes (Other)
  Sender: FDA-Public Use
  Company Number: ES-TEVA-257075ISR

PATIENT
  Age: 69 Year
  Sex: Male

DRUGS (2)
  1. AZILECT [Suspect]
     Indication: PARKINSON'S DISEASE
     Route: 048
     Dates: start: 20080101
  2. ROTIGOTINE [Suspect]
     Indication: PARKINSON'S DISEASE
     Route: 050
     Dates: start: 20080301

REACTIONS (1)
  - PLATELET COUNT DECREASED [None]
